FAERS Safety Report 13465708 (Version 2)
Quarter: 2017Q2

REPORT INFORMATION
  Report Type: Spontaneous
  Country: BR (occurrence: BR)
  Receive Date: 20170421
  Receipt Date: 20170529
  Transmission Date: 20170830
  Serious: Yes (Other)
  Sender: FDA-Public Use
  Company Number: BR-ROCHE-1919562

PATIENT
  Sex: Female

DRUGS (1)
  1. XELODA [Suspect]
     Active Substance: CAPECITABINE
     Indication: BREAST CANCER METASTATIC
     Route: 065
     Dates: start: 20161212, end: 20170203

REACTIONS (9)
  - Ill-defined disorder [Unknown]
  - Pain [Unknown]
  - Anal injury [Unknown]
  - Condition aggravated [Unknown]
  - Skin exfoliation [Unknown]
  - Colitis [Unknown]
  - Drug ineffective [Unknown]
  - Genital injury [Unknown]
  - Malaise [Unknown]
